FAERS Safety Report 9175385 (Version 3)
Quarter: 2013Q2

REPORT INFORMATION
  Report Type: Spontaneous
  Country: US (occurrence: US)
  Receive Date: 20130320
  Receipt Date: 20130417
  Transmission Date: 20140414
  Serious: Yes (Other)
  Sender: FDA-Public Use
  Company Number: US-BAYER-2013-031561

PATIENT
  Age: 33 Year
  Sex: Female

DRUGS (1)
  1. MIRENA [Suspect]
     Indication: CONTRACEPTION
     Dosage: 20 MCG/24HR, CONT
     Route: 015
     Dates: start: 20130110, end: 20130311

REACTIONS (8)
  - Pelvic cyst [None]
  - Back pain [None]
  - Malaise [None]
  - Pelvic pain [None]
  - Alopecia [None]
  - Fatigue [None]
  - Vaginal discharge [None]
  - Feeling abnormal [None]
